FAERS Safety Report 6920685-5 (Version None)
Quarter: 2010Q3

REPORT INFORMATION
  Report Type: 
  Country: None (occurrence: None)
  Receive Date: 20100812
  Receipt Date: 20100730
  Transmission Date: 20110219
  Serious: Yes (Other)
  Sender: FDA-Public Use
  Company Number: US-ELI_LILLY_AND_COMPANY-US200904004594

PATIENT
  Sex: Female

DRUGS (12)
  1. FORTEO [Suspect]
     Indication: OSTEOPOROSIS
     Dosage: 20 UG, DAILY (1/D)
     Dates: end: 20070225
  2. FORTEO [Suspect]
     Dosage: 20 UG, QOD
     Dates: start: 20070302, end: 20070322
  3. FORTEO [Suspect]
     Dosage: 20 UG, OTHER
     Dates: start: 20070323, end: 20070412
  4. FORTEO [Suspect]
     Dosage: 20 UG, DAILY (1/D)
     Dates: start: 20070413, end: 20080301
  5. SYNTHROID [Concomitant]
  6. RECLAST [Concomitant]
     Dates: start: 20080301
  7. RECLAST [Concomitant]
     Dates: start: 20090301
  8. ASACOL [Concomitant]
     Indication: COLITIS ULCERATIVE
  9. LEVSIN [Concomitant]
     Indication: COLITIS ULCERATIVE
  10. TYLENOL W/ CODEINE NO. 3 [Concomitant]
     Indication: PAIN
  11. NEXIUM [Concomitant]
  12. ZEGERID [Concomitant]

REACTIONS (14)
  - ABDOMINAL PAIN [None]
  - ADRENAL MASS [None]
  - ANAEMIA [None]
  - BONE PAIN [None]
  - DECREASED APPETITE [None]
  - DIARRHOEA [None]
  - DIVERTICULUM INTESTINAL [None]
  - DRUG INEFFECTIVE [None]
  - FLANK PAIN [None]
  - NAUSEA [None]
  - RENAL CYST [None]
  - SPLENIC ARTERY ANEURYSM [None]
  - SYSTEMIC LUPUS ERYTHEMATOSUS [None]
  - WEIGHT DECREASED [None]
